FAERS Safety Report 16467357 (Version 1)
Quarter: 2019Q2

REPORT INFORMATION
  Report Type: Report from Study
  Country: US (occurrence: US)
  Receive Date: 20190624
  Receipt Date: 20190624
  Transmission Date: 20190711
  Serious: Yes (Other)
  Sender: FDA-Public Use
  Company Number: US-ROCHE-2337706

PATIENT
  Age: 48 Year
  Sex: Female
  Weight: 124.34 kg

DRUGS (5)
  1. ATEZOLIZUMAB. [Suspect]
     Active Substance: ATEZOLIZUMAB
     Indication: HER-2 POSITIVE BREAST CANCER
     Dosage: ON DAY 1 OF EVERY 21-DAY CYCLE (AS PER PROTOCOL).?DATE OF LAST DOSE OF ATEZOLIZUMAB PRIOR TO SAE ONS
     Route: 042
     Dates: start: 20190104
  2. PERTUZUMAB. [Suspect]
     Active Substance: PERTUZUMAB
     Indication: HER-2 POSITIVE BREAST CANCER
     Dosage: LOADING DOSE: DATE OF LAST DOSE PRIOR TO SAE ONSET: 04/JAN/2019
     Route: 042
     Dates: start: 20190104
  3. TRASTUZUMAB. [Suspect]
     Active Substance: TRASTUZUMAB
     Indication: HER-2 POSITIVE BREAST CANCER
     Dosage: LOADING DOSE: DATE OF MOST RECENT DOSE PRIOR TO SAE ONSET: 04/JAN/2019
     Route: 042
     Dates: start: 20190104
  4. PERTUZUMAB. [Suspect]
     Active Substance: PERTUZUMAB
     Dosage: MAINTENANCE DOSE
     Route: 042
  5. TRASTUZUMAB. [Suspect]
     Active Substance: TRASTUZUMAB
     Dosage: MAINTENANCE DOSE
     Route: 042

REACTIONS (1)
  - Hypokalaemia [Recovered/Resolved]

NARRATIVE: CASE EVENT DATE: 20190219
